FAERS Safety Report 4305982-4 (Version None)
Quarter: 2004Q1

REPORT INFORMATION
  Report Type: 
  Country: None (occurrence: None)
  Receive Date: 20040225
  Receipt Date: 20040209
  Transmission Date: 20041129
  Serious: Yes (Death, Hospitalization)
  Sender: FDA-Public Use
  Company Number: 187697

PATIENT
  Age: 57 Year
  Sex: Female

DRUGS (5)
  1. AVONEX [Suspect]
     Indication: MULTIPLE SCLEROSIS
     Dosage: 30 MCG QW IM
     Route: 042
     Dates: start: 19920101
  2. PAXIL [Concomitant]
  3. INSULIN [Concomitant]
  4. GLUCOPHAGE ^UNS^ [Concomitant]
  5. LIPITOR [Concomitant]

REACTIONS (2)
  - MEDICATION ERROR [None]
  - SMALL CELL LUNG CANCER EXTENSIVE STAGE [None]
